FAERS Safety Report 10758524 (Version 1)
Quarter: 2015Q1

REPORT INFORMATION
  Report Type: Spontaneous
  Country: US (occurrence: None)
  Receive Date: 20150202
  Receipt Date: 20150202
  Transmission Date: 20150721
  Serious: Yes (Hospitalization)
  Sender: FDA-Public Use
  Company Number: None

PATIENT
  Age: 55 Year
  Sex: Female
  Weight: 108.3 kg

DRUGS (18)
  1. SINGULAIR [Concomitant]
     Active Substance: MONTELUKAST SODIUM
  2. FLONASE [Concomitant]
     Active Substance: FLUTICASONE PROPIONATE
  3. HUMALOG [Concomitant]
     Active Substance: INSULIN LISPRO
  4. BUMEX [Concomitant]
     Active Substance: BUMETANIDE
  5. SPIRIVA [Concomitant]
     Active Substance: TIOTROPIUM BROMIDE MONOHYDRATE
  6. PERCOCET [Suspect]
     Active Substance: ACETAMINOPHEN\OXYCODONE HYDROCHLORIDE
     Indication: NEPHRECTOMY
     Dosage: 5-325MG X 2 Q4HRS PRN
     Route: 048
  7. GABAPENTIN. [Suspect]
     Active Substance: GABAPENTIN
     Dosage: QAM
     Route: 048
  8. PRAVACHOL [Concomitant]
     Active Substance: PRAVASTATIN SODIUM
  9. LEVAQUIN [Concomitant]
     Active Substance: LEVOFLOXACIN
  10. EXFORGE [Concomitant]
     Active Substance: AMLODIPINE BESYLATE\VALSARTAN
  11. COREG [Concomitant]
     Active Substance: CARVEDILOL
  12. RESTASIS [Concomitant]
     Active Substance: CYCLOSPORINE
  13. CARAFATE [Concomitant]
     Active Substance: SUCRALFATE
  14. ALBUTEROL. [Concomitant]
     Active Substance: ALBUTEROL
  15. ADVAIR HFA [Concomitant]
     Active Substance: FLUTICASONE PROPIONATE\SALMETEROL XINAFOATE
  16. LANTUS [Concomitant]
     Active Substance: INSULIN GLARGINE
  17. MOBIC [Concomitant]
     Active Substance: MELOXICAM
  18. KDUR [Concomitant]

REACTIONS (4)
  - Unevaluable event [None]
  - Drug screen positive [None]
  - Respiratory failure [None]
  - Hypoxia [None]

NARRATIVE: CASE EVENT DATE: 20140916
